FAERS Safety Report 8776077 (Version 1)
Quarter: 2012Q4

REPORT INFORMATION
  Report Type: 
  Country: BR (occurrence: BR)
  Receive Date: 20120910
  Receipt Date: 20120910
  Transmission Date: 20130627
  Serious: Yes (Other)
  Sender: FDA-Public Use
  Company Number: BR-009507513-1207BRA013058

PATIENT

DRUGS (3)
  1. JANUVIA [Suspect]
     Indication: DIABETES MELLITUS MANAGEMENT
     Dosage: 100 mg, Once
     Dates: start: 20120625
  2. ZETIA [Suspect]
     Indication: BLOOD CHOLESTEROL
     Dosage: UNK, Once
     Route: 048
     Dates: start: 201106, end: 201206
  3. VYTORIN [Suspect]
     Indication: BLOOD CHOLESTEROL
     Dosage: UNK, Once
     Route: 048
     Dates: start: 201206

REACTIONS (2)
  - Blood glucose fluctuation [Recovered/Resolved]
  - Blood creatine phosphokinase increased [Unknown]
